FAERS Safety Report 8141063-X (Version None)
Quarter: 2012Q1

REPORT INFORMATION
  Report Type: 
  Country: None (occurrence: None)
  Receive Date: 20120103
  Receipt Date: 20111013
  Transmission Date: 20120608
  Serious: No
  Sender: FDA-Public Use
  Company Number: AE-2011-02295

PATIENT
  Age: 56 Year
  Sex: Male
  Weight: 88.905 kg

DRUGS (3)
  1. RIBVIRIN (RIBAVIRIN) [Concomitant]
  2. INCIVEK [Suspect]
     Dosage: 2250 MG (750 MG,1 IN 8 HR),ORAL
     Route: 048
     Dates: start: 20110818
  3. PEGASYS [Concomitant]

REACTIONS (5)
  - NAUSEA [None]
  - PRURITUS [None]
  - RASH [None]
  - DRY SKIN [None]
  - FATIGUE [None]
